FAERS Safety Report 18586001 (Version 1)
Quarter: 2020Q4

REPORT INFORMATION
  Report Type: Spontaneous
  Country: US (occurrence: US)
  Receive Date: 20201207
  Receipt Date: 20201207
  Transmission Date: 20210114
  Serious: No
  Sender: FDA-Public Use
  Company Number: US-BAYER-2020-258862

PATIENT
  Age: 66 Year
  Sex: Female

DRUGS (12)
  1. DIPHENHYDRAMINE. [Concomitant]
     Active Substance: DIPHENHYDRAMINE
     Dosage: 50 MG (NIGHTLY)
  2. OMEPRAZOLE. [Concomitant]
     Active Substance: OMEPRAZOLE
     Dosage: 20 MG, BID
  3. DAILY MULTIVITAMIN [Concomitant]
     Active Substance: VITAMINS
  4. NAPROXEN SODIUM ({= 220 MG) [Suspect]
     Active Substance: NAPROXEN SODIUM
  5. ATORVASTATIN [Concomitant]
     Active Substance: ATORVASTATIN
  6. TRAZODONE [Concomitant]
     Active Substance: TRAZODONE HYDROCHLORIDE
     Dosage: 50 MG (NIGHTLY)
  7. ASPIRIN (E.C.) [Concomitant]
     Active Substance: ASPIRIN
  8. KAVA KAVA [HUMULUS LUPULUS EXTRACT;PASSIFLORA INCARNATA EXTRACT;PI [Concomitant]
     Indication: ANXIETY
     Dosage: 100 MG, TID
     Route: 048
  9. LITHIUM. [Interacting]
     Active Substance: LITHIUM
     Dosage: 300 MG, BID
  10. GINKGO BILOBA [Concomitant]
     Active Substance: GINKGO
     Indication: MEMORY IMPAIRMENT
     Dosage: 60 MG, QD
     Route: 048
  11. CALCIUM [Concomitant]
     Active Substance: CALCIUM
     Dosage: 500 MG, QD
  12. VITAMIN D [VITAMIN D NOS] [Concomitant]
     Active Substance: VITAMIN D NOS

REACTIONS (2)
  - Labelled drug-drug interaction medication error [None]
  - Toxicity to various agents [None]
